FAERS Safety Report 19890132 (Version 1)
Quarter: 2021Q3

REPORT INFORMATION
  Report Type: Spontaneous
  Country: PT (occurrence: PT)
  Receive Date: 20210927
  Receipt Date: 20210927
  Transmission Date: 20211014
  Serious: Yes (Other)
  Sender: FDA-Public Use
  Company Number: PT-TAKEDA-2021TUS058615

PATIENT
  Age: 60 Year
  Sex: Male

DRUGS (4)
  1. COAGULATION FACTOR VIII (RECOMBINANT) [Suspect]
     Active Substance: ANTIHEMOPHILIC FACTOR, HUMAN RECOMBINANT
     Indication: VON WILLEBRAND^S DISEASE
     Dosage: UNK
     Route: 065
  2. COAGULATION FACTOR VIII (RECOMBINANT) [Suspect]
     Active Substance: ANTIHEMOPHILIC FACTOR, HUMAN RECOMBINANT
     Indication: VON WILLEBRAND^S DISEASE
     Dosage: UNK
     Route: 065
  3. OCTREOTIDE. [Suspect]
     Active Substance: OCTREOTIDE
     Indication: VON WILLEBRAND^S DISEASE
     Route: 065
  4. COAGULATION FACTOR VIII (RECOMBINANT) [Suspect]
     Active Substance: ANTIHEMOPHILIC FACTOR, HUMAN RECOMBINANT
     Indication: VON WILLEBRAND^S DISEASE
     Dosage: UNK
     Route: 065

REACTIONS (1)
  - Therapeutic product effect incomplete [Unknown]
